FAERS Safety Report 9018074 (Version 1)
Quarter: 2013Q1

REPORT INFORMATION
  Report Type: Spontaneous
  Country: ES (occurrence: ES)
  Receive Date: 20130117
  Receipt Date: 20130117
  Transmission Date: 20140127
  Serious: Yes (Death, Hospitalization)
  Sender: FDA-Public Use
  Company Number: PHHY2013ES004103

PATIENT
  Age: 57 Year
  Sex: Male

DRUGS (1)
  1. TACROLIMUS [Suspect]
     Dates: start: 20120303

REACTIONS (3)
  - Gastrointestinal haemorrhage [Fatal]
  - Nephropathy toxic [Unknown]
  - Confusional state [Unknown]
